FAERS Safety Report 7985009-3 (Version None)
Quarter: 2011Q4

REPORT INFORMATION
  Report Type: 
  Country: None (occurrence: None)
  Receive Date: 20111216
  Receipt Date: 20111110
  Transmission Date: 20120403
  Serious: No
  Sender: FDA-Public Use
  Company Number: US-ALLERGAN-1114795US

PATIENT
  Age: 62 Year
  Sex: Female

DRUGS (1)
  1. LATISSE [Suspect]
     Indication: THERAPEUTIC SKIN CARE TOPICAL
     Dosage: 2 GTT, QHS
     Route: 061
     Dates: start: 20110801

REACTIONS (2)
  - ASTHENOPIA [None]
  - VISION BLURRED [None]
